FAERS Safety Report 7372384-6 (Version None)
Quarter: 2011Q1

REPORT INFORMATION
  Report Type: 
  Country: None (occurrence: None)
  Receive Date: 20110324
  Receipt Date: 20110315
  Transmission Date: 20110831
  Serious: Yes (Other)
  Sender: FDA-Public Use
  Company Number: US-SANOFI-AVENTIS-2011SA016095

PATIENT
  Age: 79 Year
  Sex: Male

DRUGS (6)
  1. NORVASC [Concomitant]
  2. DABIGATRAN ETEXILATE [Concomitant]
     Dates: start: 20110121
  3. MULTAQ [Suspect]
     Route: 048
     Dates: start: 20110302, end: 20110303
  4. ZOCOR [Concomitant]
     Route: 048
     Dates: start: 20090115
  5. MULTAQ [Suspect]
     Indication: ATRIAL FIBRILLATION
     Route: 048
     Dates: start: 20110121, end: 20110301
  6. HYTRIN [Concomitant]

REACTIONS (5)
  - BLOOD ALKALINE PHOSPHATASE INCREASED [None]
  - ASPARTATE AMINOTRANSFERASE INCREASED [None]
  - MIXED LIVER INJURY [None]
  - ALANINE AMINOTRANSFERASE INCREASED [None]
  - CHROMATURIA [None]
